FAERS Safety Report 9551066 (Version 5)
Quarter: 2013Q4

REPORT INFORMATION
  Report Type: Report from Study
  Country: FR (occurrence: FR)
  Receive Date: 20130925
  Receipt Date: 20131030
  Transmission Date: 20140711
  Serious: Yes (Hospitalization)
  Sender: FDA-Public Use
  Company Number: FR-ROCHE-1279771

PATIENT
  Age: 24 Year
  Sex: Male

DRUGS (9)
  1. RITUXIMAB [Suspect]
     Indication: ACUTE LEUKAEMIA
     Route: 042
     Dates: start: 20130606, end: 20130917
  2. VINCRISTINE [Suspect]
     Indication: ACUTE LEUKAEMIA
     Route: 065
     Dates: start: 20130606, end: 20130719
  3. CANCIDAS [Concomitant]
     Route: 065
  4. VERSATIS [Concomitant]
     Dosage: 2 PLASTERS DAILY
     Route: 065
  5. LYRICA [Concomitant]
     Dosage: ONE CAPSULE IN THE MORNING, AT LUNCHTIME AND EVENING
     Route: 065
  6. ALPRAZOLAM [Concomitant]
     Dosage: IN THE EVENING
     Route: 065
  7. DIFFU K [Concomitant]
     Dosage: AT LUNCHTIME AND IN THE EVENING
     Route: 065
  8. VINDESINE [Concomitant]
     Route: 065
     Dates: start: 20130809, end: 20130809
  9. ARACYTINE [Concomitant]
     Route: 065
     Dates: start: 20130827, end: 20130828

REACTIONS (1)
  - Guillain-Barre syndrome [Recovered/Resolved with Sequelae]
